FAERS Safety Report 7771414 (Version 4)
Quarter: 2013Q2

REPORT INFORMATION
  Report Type: Spontaneous
  Country: CA (occurrence: CA)
  Receive Date: 20110124
  Receipt Date: 20130410
  Transmission Date: 20140414
  Serious: Yes (Life-Threatening)
  Sender: FDA-Public Use
  Company Number: PHHY2011CA04822

PATIENT
  Age: 51 Year
  Sex: Female

DRUGS (3)
  1. ACLASTA [Suspect]
     Indication: OSTEOPOROSIS
     Dosage: UNK
     Route: 042
     Dates: start: 20100326
  2. ACLASTA [Suspect]
     Dosage: UNK
     Route: 042
     Dates: start: 20110408
  3. ACLASTA [Suspect]
     Dosage: UNK
     Route: 042
     Dates: start: 20120402

REACTIONS (8)
  - Feeling abnormal [Unknown]
  - Sinusitis [Unknown]
  - Pain in extremity [Unknown]
  - Hypokinesia [Unknown]
  - Chills [Unknown]
  - Diarrhoea [Unknown]
  - Nasopharyngitis [Unknown]
  - Hypoaesthesia [Unknown]
